FAERS Safety Report 5695388-8 (Version None)
Quarter: 2008Q2

REPORT INFORMATION
  Report Type: 
  Country: None (occurrence: None)
  Receive Date: 20080402
  Receipt Date: 20080306
  Transmission Date: 20081010
  Serious: Yes (Other)
  Sender: FDA-Public Use
  Company Number: 2008S1004143

PATIENT
  Sex: Female

DRUGS (8)
  1. FLUOXETINE [Suspect]
     Indication: SCHIZOPHRENIA
     Dosage: 20 MG; ORAL : 60 MG ORAL
     Route: 048
     Dates: start: 20070921, end: 20080206
  2. ACETAMINOPHEN [Concomitant]
  3. IBUPROFEN [Concomitant]
  4. CODEINE SUL TAB [Concomitant]
  5. IBUPROFEN [Concomitant]
  6. ZOLPIDEM [Concomitant]
  7. CHLORPROTHIXENE (CHLORPROTHIXENE) [Concomitant]
  8. OXAZEPAM [Concomitant]

REACTIONS (16)
  - ABDOMINAL PAIN UPPER [None]
  - ABORTION SPONTANEOUS [None]
  - ARTHRALGIA [None]
  - ASTHENIA [None]
  - BOWEL MOVEMENT IRREGULARITY [None]
  - CHILLS [None]
  - DRUG EXPOSURE DURING PREGNANCY [None]
  - FATIGUE [None]
  - HYPERHIDROSIS [None]
  - INSOMNIA [None]
  - LOSS OF EMPLOYMENT [None]
  - PREGNANCY [None]
  - PRURITUS [None]
  - RECTAL HAEMORRHAGE [None]
  - WEIGHT DECREASED [None]
  - YAWNING [None]
